FAERS Safety Report 4559052-0 (Version None)
Quarter: 2005Q1

REPORT INFORMATION
  Report Type: 
  Country: None (occurrence: None)
  Receive Date: 20050124
  Receipt Date: 20050112
  Transmission Date: 20050727
  Serious: Yes (Hospitalization, Disabling, Other)
  Sender: FDA-Public Use
  Company Number: US-JNJFOC-20040707930

PATIENT
  Sex: Male
  Weight: 65.68 kg

DRUGS (23)
  1. REMICADE [Suspect]
     Route: 042
  2. REMICADE [Suspect]
     Indication: CROHN'S DISEASE
     Route: 042
  3. BENADRYL [Concomitant]
     Route: 040
  4. BENADRYL [Concomitant]
     Indication: PREMEDICATION
     Route: 040
  5. FESO4 [Concomitant]
  6. SYNTHROID [Concomitant]
  7. PREDNISONE [Concomitant]
  8. HUMALOG [Concomitant]
     Indication: DIABETES MELLITUS
     Dosage: SLIDING SCALE
     Route: 050
  9. ULTRALENTE [Concomitant]
     Route: 050
  10. VITAMIN C [Concomitant]
  11. FLAGYL [Concomitant]
  12. CIPRO [Concomitant]
  13. ASOCOL [Concomitant]
  14. PREVACID [Concomitant]
  15. MERCAPTOPURINE [Concomitant]
  16. MUTIVITAMINS [Concomitant]
  17. MUTIVITAMINS [Concomitant]
  18. MUTIVITAMINS [Concomitant]
  19. MUTIVITAMINS [Concomitant]
  20. MUTIVITAMINS [Concomitant]
  21. MUTIVITAMINS [Concomitant]
  22. MUTIVITAMINS [Concomitant]
  23. MUTIVITAMINS [Concomitant]

REACTIONS (12)
  - BLOOD POTASSIUM DECREASED [None]
  - BLOOD UREA INCREASED [None]
  - CHEST PAIN [None]
  - CROHN'S DISEASE [None]
  - DYSPNOEA [None]
  - FLUSHING [None]
  - HYPERHIDROSIS [None]
  - INFUSION RELATED REACTION [None]
  - OXYGEN SATURATION DECREASED [None]
  - SERUM SICKNESS [None]
  - SUPERIOR SAGITTAL SINUS THROMBOSIS [None]
  - TACHYCARDIA [None]
